FAERS Safety Report 18055720 (Version 2)
Quarter: 2021Q2

REPORT INFORMATION
  Report Type: Spontaneous
  Country: JP (occurrence: JP)
  Receive Date: 20200722
  Receipt Date: 20210628
  Transmission Date: 20210717
  Serious: Yes (Other)
  Sender: FDA-Public Use
  Company Number: JP-TEVA-2020-JP-1802568

PATIENT
  Age: 62 Year
  Sex: Female

DRUGS (3)
  1. CARBOPLATIN. [Suspect]
     Active Substance: CARBOPLATIN
     Indication: SMALL CELL CARCINOMA OF THE CERVIX
     Dosage: AUC= 6
     Route: 065
  2. PACLITAXEL. [Suspect]
     Active Substance: PACLITAXEL
     Indication: SMALL CELL CARCINOMA OF THE CERVIX
     Route: 065
  3. BEVACIZUMAB. [Suspect]
     Active Substance: BEVACIZUMAB
     Indication: SMALL CELL CARCINOMA OF THE CERVIX
     Route: 065

REACTIONS (3)
  - Proteinuria [Unknown]
  - Hypertension [Unknown]
  - Pancytopenia [Unknown]
